FAERS Safety Report 6683374-0 (Version None)
Quarter: 2010Q2

REPORT INFORMATION
  Report Type: 
  Country: None (occurrence: None)
  Receive Date: 20100415
  Receipt Date: 20100407
  Transmission Date: 20101027
  Serious: Yes (Other)
  Sender: FDA-Public Use
  Company Number: GB-GILEAD-2010-0027210

PATIENT
  Age: 44 Year
  Sex: Female

DRUGS (8)
  1. TRUVADA [Suspect]
     Indication: HIV INFECTION
     Route: 048
  2. VIREAD [Suspect]
     Indication: HIV INFECTION
     Route: 048
  3. PREZISTA [Suspect]
     Indication: HIV INFECTION
     Route: 048
     Dates: start: 20080101
  4. INTELENCE [Suspect]
     Indication: HIV INFECTION
     Route: 048
     Dates: start: 20080101
  5. MARAVIROC [Suspect]
     Indication: HIV INFECTION
     Route: 048
  6. RALTEGRAVIR [Suspect]
     Indication: HIV INFECTION
     Route: 048
  7. LAMIVUDINE [Suspect]
     Indication: HIV INFECTION
  8. RITONAVIR [Suspect]
     Indication: HIV INFECTION

REACTIONS (4)
  - HYPERGLYCAEMIA [None]
  - HYPERLIPIDAEMIA [None]
  - PROTEINURIA [None]
  - TYPE 2 DIABETES MELLITUS [None]
